FAERS Safety Report 7457053-6 (Version None)
Quarter: 2011Q1

REPORT INFORMATION
  Report Type: 
  Country: None (occurrence: None)
  Receive Date: 20110302
  Receipt Date: 20101214
  Transmission Date: 20110831
  Serious: No
  Sender: FDA-Public Use
  Company Number: 023836

PATIENT
  Sex: Female
  Weight: 116 kg

DRUGS (17)
  1. CIMZIA [Suspect]
     Indication: RHEUMATOID ARTHRITIS
     Dosage: (TWO SHOTS (INDUCTION DOSE) SUBCUTANEOUS)
     Route: 058
     Dates: start: 20101203
  2. LISINOPRIL [Concomitant]
  3. LEVOTHYROXINE SODIUM [Concomitant]
  4. ALENDRONATE SODIUM [Concomitant]
  5. CALCIUM [Concomitant]
  6. METHOTREXATE [Concomitant]
  7. FLEXERIL [Concomitant]
  8. TORSEMIDE [Concomitant]
  9. VICODIN [Concomitant]
  10. VERAPAMIL [Concomitant]
  11. VITAMIN B12 NOS [Concomitant]
  12. PREDNISONE TAB [Concomitant]
  13. POTASSIUM [Concomitant]
  14. FLUTICASONE PROPIONATE [Concomitant]
  15. IBUPROFEN [Concomitant]
  16. MULTI-VITAMINS [Concomitant]
  17. FOLIC ACID [Concomitant]

REACTIONS (5)
  - FATIGUE [None]
  - GAIT DISTURBANCE [None]
  - ASTHENIA [None]
  - ARTHRALGIA [None]
  - DRUG EFFECT DECREASED [None]
